FAERS Safety Report 6088047-3 (Version None)
Quarter: 2009Q1

REPORT INFORMATION
  Report Type: 
  Country: None (occurrence: None)
  Receive Date: 20090218
  Receipt Date: 20090212
  Transmission Date: 20090719
  Serious: Yes (Hospitalization, Disabling)
  Sender: FDA-Public Use
  Company Number: 2007SP025470

PATIENT
  Age: 64 Year
  Sex: Male
  Weight: 59 kg

DRUGS (5)
  1. PEG-INTRON [Suspect]
     Indication: HEPATITIS C
     Dosage: 80 MCG;QW;SC
     Route: 058
     Dates: start: 20070508, end: 20070711
  2. REBETOL [Suspect]
     Indication: HEPATITIS C
     Dosage: 600 MG;QD;PO
     Route: 048
     Dates: start: 20070508, end: 20070711
  3. MUCOSTA [Concomitant]
  4. PROTECADIN [Concomitant]
  5. ZOPICOOL [Concomitant]

REACTIONS (3)
  - DRUG INEFFECTIVE [None]
  - OPTIC ISCHAEMIC NEUROPATHY [None]
  - PAPILLOEDEMA [None]
